FAERS Safety Report 13602502 (Version 1)
Quarter: 2017Q2

REPORT INFORMATION
  Report Type: Report from Study
  Country: CA (occurrence: CA)
  Receive Date: 20170601
  Receipt Date: 20170601
  Transmission Date: 20170830
  Serious: Yes (Hospitalization)
  Sender: FDA-Public Use
  Company Number: CA-JNJFOC-20170526647

PATIENT
  Sex: Male
  Weight: 67.3 kg

DRUGS (1)
  1. STELARA [Suspect]
     Active Substance: USTEKINUMAB
     Indication: CROHN^S DISEASE
     Route: 058

REACTIONS (5)
  - Infected fistula [Unknown]
  - Headache [Unknown]
  - Palpitations [Unknown]
  - Dyspnoea [Unknown]
  - Vital functions abnormal [Unknown]
